FAERS Safety Report 4556663-3 (Version None)
Quarter: 2005Q1

REPORT INFORMATION
  Report Type: 
  Country: None (occurrence: None)
  Receive Date: 20050118
  Receipt Date: 20050105
  Transmission Date: 20050727
  Serious: Yes (Other)
  Sender: FDA-Public Use
  Company Number: HQYWE084413AUG03

PATIENT
  Age: 55 Year
  Sex: Female
  Weight: 68.1 kg

DRUGS (4)
  1. PREMPRO [Suspect]
     Indication: HORMONE REPLACEMENT THERAPY
     Dosage: ORAL
     Route: 048
     Dates: start: 19970701, end: 19990101
  2. OGEN [Suspect]
  3. PROVERA [Suspect]
  4. PROZAC [Concomitant]

REACTIONS (6)
  - BREAST CANCER STAGE III [None]
  - HAEMATOCRIT DECREASED [None]
  - INTERVERTEBRAL DISC SPACE NARROWING [None]
  - METASTASES TO LYMPH NODES [None]
  - OSTEOARTHRITIS [None]
  - RADIATION PNEUMONITIS [None]
